FAERS Safety Report 6160836-6 (Version None)
Quarter: 2009Q2

REPORT INFORMATION
  Report Type: 
  Country: None (occurrence: None)
  Receive Date: 20090420
  Receipt Date: 20090407
  Transmission Date: 20091009
  Serious: Yes (Hospitalization)
  Sender: FDA-Public Use
  Company Number: CA-ROCHE-602038

PATIENT
  Sex: Female
  Weight: 75 kg

DRUGS (8)
  1. PEG-INTERFERON ALFA 2A (RO 25-8310) [Suspect]
     Dosage: FORM: LIQUID, THERAPY STOPPED. DOSE BLINDED, LAST DOSE PRIOR TO SAE WAS RECEIVED ON 24 OCTOBER 2008.
     Route: 058
     Dates: start: 20080229
  2. PEG-INTERFERON ALFA 2A (RO 25-8310) [Suspect]
     Dosage: DOSE UNBLINDED.
     Route: 058
  3. BLINDED RO 4588161 (HCV POLYMERASE INH) [Suspect]
     Dosage: THERAPY STOPPED. BLINDED THERAPY.
     Route: 048
     Dates: start: 20080229
  4. BLINDED RO 4588161 (HCV POLYMERASE INH) [Suspect]
     Dosage: THERAPY WAS UNBLINDED.
     Route: 048
  5. RIBAVIRIN [Suspect]
     Dosage: THERAPY STOPPED. LAST DOSE PRIOR TO SAE WAS RECEIVED ON 27 OCTOBER 2008.
     Route: 048
     Dates: start: 20080229
  6. MEPRON [Concomitant]
     Dates: start: 20081126
  7. RISPERIDONE [Concomitant]
     Dates: start: 20080919
  8. CITALOPRAM HYDROBROMIDE [Concomitant]
     Indication: DEPRESSION
     Dates: start: 20081122

REACTIONS (5)
  - ALANINE AMINOTRANSFERASE INCREASED [None]
  - APPENDICITIS [None]
  - ASPARTATE AMINOTRANSFERASE INCREASED [None]
  - BLOOD ALKALINE PHOSPHATASE INCREASED [None]
  - HEPATIC ENZYME INCREASED [None]
